FAERS Safety Report 8773567 (Version 1)
Quarter: 2012Q4

REPORT INFORMATION
  Report Type: 
  Country: DE (occurrence: DE)
  Receive Date: 20120907
  Receipt Date: 20120907
  Transmission Date: 20130627
  Serious: Yes (Other)
  Sender: FDA-Public Use
  Company Number: DE-GLAXOSMITHKLINE-D0076823A

PATIENT
  Age: 84 Year
  Sex: Male

DRUGS (1)
  1. DUODART [Suspect]
     Route: 048

REACTIONS (2)
  - Hepatic cirrhosis [Unknown]
  - Liver disorder [Unknown]
